FAERS Safety Report 16297549 (Version 1)
Quarter: 2019Q2

REPORT INFORMATION
  Report Type: Spontaneous
  Country: US (occurrence: US)
  Receive Date: 20190510
  Receipt Date: 20190510
  Transmission Date: 20190711
  Serious: No
  Sender: FDA-Public Use
  Company Number: US-APOTEX-2018AP018455

PATIENT
  Age: 2 Year
  Sex: Male
  Weight: 12 kg

DRUGS (1)
  1. TRAZODONE HYDROCHLORIDE. [Suspect]
     Active Substance: TRAZODONE HYDROCHLORIDE
     Indication: PRODUCT USED FOR UNKNOWN INDICATION
     Dosage: 100 MG (ESTIMATED DOSE) (8.33 MG/KG), SINGLE
     Route: 048

REACTIONS (4)
  - Accidental exposure to product by child [Unknown]
  - Ataxia [Recovered/Resolved]
  - Accidental overdose [Unknown]
  - Somnolence [Recovered/Resolved]
